FAERS Safety Report 7376745-0 (Version None)
Quarter: 2011Q1

REPORT INFORMATION
  Report Type: 
  Country: None (occurrence: None)
  Receive Date: 20110325
  Receipt Date: 20110317
  Transmission Date: 20110831
  Serious: Yes (Hospitalization)
  Sender: FDA-Public Use
  Company Number: US-ASTRAZENECA-2011SE15185

PATIENT
  Sex: Female

DRUGS (3)
  1. SYMBICORT [Suspect]
     Dosage: REDUCED
     Route: 055
  2. SYMBICORT [Suspect]
     Dosage: 160/4.5 MCG 2
     Route: 055
  3. SYMBICORT [Suspect]
     Dosage: 160/4.5 MCG 2
     Route: 055

REACTIONS (2)
  - INCORRECT DOSE ADMINISTERED [None]
  - PNEUMONIA [None]
